FAERS Safety Report 16978722 (Version 1)
Quarter: 2019Q4

REPORT INFORMATION
  Report Type: Spontaneous
  Country: US (occurrence: US)
  Receive Date: 20191031
  Receipt Date: 20191031
  Transmission Date: 20200122
  Serious: Yes (Life-Threatening, Hospitalization, Other)
  Sender: FDA-Public Use
  Company Number: US-AMGEN-USASP2019179441

PATIENT
  Age: 43 Year
  Sex: Female

DRUGS (2)
  1. CLINDAMYCIN. [Concomitant]
     Active Substance: CLINDAMYCIN
  2. ETANERCEPT [Suspect]
     Active Substance: ETANERCEPT
     Indication: RHEUMATOID ARTHRITIS
     Dosage: UNK
     Route: 065

REACTIONS (10)
  - Acute kidney injury [Unknown]
  - Toxic shock syndrome [Unknown]
  - Rash [Unknown]
  - Multiple organ dysfunction syndrome [Unknown]
  - Beta haemolytic streptococcal infection [Unknown]
  - Joint swelling [Unknown]
  - Otitis media [Unknown]
  - Acute respiratory failure [Unknown]
  - Arthralgia [Unknown]
  - Extra dose administered [Unknown]
